FAERS Safety Report 13541279 (Version 1)
Quarter: 2017Q2

REPORT INFORMATION
  Report Type: Spontaneous
  Country: TW (occurrence: TW)
  Receive Date: 20170512
  Receipt Date: 20170512
  Transmission Date: 20170830
  Serious: Yes (Other)
  Sender: FDA-Public Use
  Company Number: TW-BRISTOL-MYERS SQUIBB COMPANY-BMS-2017-039392

PATIENT
  Sex: Male

DRUGS (1)
  1. SPRYCEL [Suspect]
     Active Substance: DASATINIB
     Indication: CHRONIC MYELOID LEUKAEMIA
     Dosage: N/A
     Route: 065

REACTIONS (5)
  - Eosinophil count increased [Unknown]
  - Transfusion [Unknown]
  - Blood creatinine abnormal [Unknown]
  - Diabetic eye disease [Unknown]
  - Haemoglobin decreased [Unknown]
